FAERS Safety Report 9404439 (Version 2)
Quarter: 2013Q3

REPORT INFORMATION
  Report Type: Spontaneous
  Country: US (occurrence: US)
  Receive Date: 20130717
  Receipt Date: 20130909
  Transmission Date: 20140515
  Serious: No
  Sender: FDA-Public Use
  Company Number: US-PFIZER INC-2013207697

PATIENT
  Age: 53 Year
  Sex: Female

DRUGS (5)
  1. LYRICA [Suspect]
     Indication: FIBROMYALGIA
     Dosage: 75 MG, 2X/DAY
  2. LYRICA [Suspect]
     Indication: PAIN
     Dosage: 375MG (75 MG FIVE PILLS), DAILY
  3. CELEBREX [Suspect]
     Indication: PAIN
     Dosage: 200 MG, 2X/DAY
  4. CELEBREX [Suspect]
     Dosage: 400 MG, 1X/DAY
  5. MOBIC [Concomitant]
     Indication: PAIN
     Dosage: 15 MG, 2X/DAY

REACTIONS (16)
  - Pain [Unknown]
  - Musculoskeletal pain [Unknown]
  - Back pain [Unknown]
  - Arthralgia [Unknown]
  - Pain in extremity [Unknown]
  - Abdominal pain [Unknown]
  - Musculoskeletal stiffness [Unknown]
  - Activities of daily living impaired [Unknown]
  - Nausea [Unknown]
  - Dyspepsia [Unknown]
  - Dry mouth [Unknown]
  - Muscle spasms [Unknown]
  - Joint swelling [Unknown]
  - Headache [Unknown]
  - Constipation [Unknown]
  - Drug effect incomplete [Unknown]
